FAERS Safety Report 26148920 (Version 1)
Quarter: 2025Q4

REPORT INFORMATION
  Report Type: Report from Study
  Country: CA (occurrence: CA)
  Receive Date: 20251212
  Receipt Date: 20251212
  Transmission Date: 20260118
  Serious: Yes (Other)
  Sender: Alvotech
  Company Number: CA-JAMP PHARMA CORPORATION-2025-JAM-CA-01302

PATIENT
  Age: 65 Year
  Sex: Female

DRUGS (2)
  1. SIMLANDI [Suspect]
     Active Substance: ADALIMUMAB-RYVK
     Indication: Ankylosing spondylitis
     Dosage: UNK
     Route: 065
  2. NAPROXEN [Concomitant]
     Active Substance: NAPROXEN
     Indication: Product used for unknown indication
     Dosage: UNK
     Route: 065

REACTIONS (10)
  - Ankylosing spondylitis [Unknown]
  - Migraine [Unknown]
  - SARS-CoV-2 test positive [Unknown]
  - Decreased appetite [Unknown]
  - Headache [Unknown]
  - Oropharyngeal pain [Unknown]
  - Arthritis [Unknown]
  - Peripheral swelling [Recovered/Resolved]
  - Pyrexia [Unknown]
  - Loss of therapeutic response [Unknown]

NARRATIVE: CASE EVENT DATE: 20250101
